FAERS Safety Report 23355895 (Version 3)
Quarter: 2024Q1

REPORT INFORMATION
  Report Type: Spontaneous
  Country: JP (occurrence: JP)
  Receive Date: 20240102
  Receipt Date: 20240208
  Transmission Date: 20240410
  Serious: Yes (Hospitalization, Other)
  Sender: FDA-Public Use
  Company Number: JP-TAKEDA-2023TJP017441

PATIENT
  Age: 79 Year
  Sex: Male

DRUGS (11)
  1. VECTIBIX [Interacting]
     Active Substance: PANITUMUMAB
     Indication: Colon cancer
     Dosage: UNK UNK, Q2WK
     Route: 041
     Dates: start: 20231107, end: 20231207
  2. VECTIBIX [Interacting]
     Active Substance: PANITUMUMAB
     Dosage: UNK UNK, Q2WK
     Route: 041
     Dates: start: 20240126
  3. OXALIPLATIN [Suspect]
     Active Substance: OXALIPLATIN
     Indication: Product used for unknown indication
     Dosage: UNK
     Route: 065
     Dates: start: 20231107
  4. LEVOLEUCOVORIN CALCIUM [Suspect]
     Active Substance: LEVOLEUCOVORIN CALCIUM
     Indication: Product used for unknown indication
     Dosage: UNK
     Route: 065
     Dates: start: 20231107
  5. LEVOLEUCOVORIN CALCIUM [Suspect]
     Active Substance: LEVOLEUCOVORIN CALCIUM
     Dosage: UNK
     Route: 065
     Dates: start: 20240126
  6. FLUOROURACIL [Suspect]
     Active Substance: FLUOROURACIL
     Indication: Product used for unknown indication
     Dosage: UNK
     Route: 065
     Dates: start: 20231107
  7. FLUOROURACIL [Suspect]
     Active Substance: FLUOROURACIL
     Dosage: UNK
     Route: 065
     Dates: start: 20240126
  8. XARELTO [Suspect]
     Active Substance: RIVAROXABAN
     Indication: Transient ischaemic attack
     Dosage: UNK
     Route: 048
  9. XARELTO [Suspect]
     Active Substance: RIVAROXABAN
     Indication: Atrial fibrillation
     Dosage: UNK
     Route: 048
  10. VONOPRAZAN FUMARATE [Concomitant]
     Active Substance: VONOPRAZAN FUMARATE
     Dosage: UNK
  11. MAGNESIUM OXIDE [Concomitant]
     Active Substance: MAGNESIUM OXIDE
     Dosage: UNK

REACTIONS (2)
  - Gastrointestinal perforation [Recovered/Resolved]
  - Lung opacity [Recovered/Resolved]

NARRATIVE: CASE EVENT DATE: 20231211
